FAERS Safety Report 10286253 (Version 2)
Quarter: 2014Q3

REPORT INFORMATION
  Report Type: Spontaneous
  Country: CH (occurrence: CH)
  Receive Date: 20140709
  Receipt Date: 20140821
  Transmission Date: 20150326
  Serious: Yes (Death)
  Sender: FDA-Public Use
  Company Number: CH-BAYER-2014-102104

PATIENT
  Age: 29 Year
  Sex: Female

DRUGS (1)
  1. STIVARGA [Suspect]
     Active Substance: REGORAFENIB
     Indication: COLORECTAL CANCER METASTATIC
     Dosage: 160 MG FOR 3 WEEKS, THEN 1 WEEK PAUSE
     Route: 048
     Dates: start: 20140515, end: 20140605

REACTIONS (1)
  - Colorectal cancer metastatic [Fatal]
